FAERS Safety Report 16181277 (Version 2)
Quarter: 2019Q2

REPORT INFORMATION
  Report Type: Report from Study
  Country: PR (occurrence: PR)
  Receive Date: 20190410
  Receipt Date: 20190418
  Transmission Date: 20190711
  Serious: Yes (Other)
  Sender: FDA-Public Use
  Company Number: PR-MALLINCKRODT-T201902594

PATIENT
  Age: 69 Year
  Sex: Male

DRUGS (2)
  1. REPOSITORY CORTICOTROPIN INJECTION [Suspect]
     Active Substance: CORTICOTROPIN
     Indication: PROTEINURIA
  2. REPOSITORY CORTICOTROPIN INJECTION [Suspect]
     Active Substance: CORTICOTROPIN
     Indication: NEPHROTIC SYNDROME
     Dosage: 80 UNITS/1 ML, 2 TIMES PER WEEK MONDAY/THURSDAY
     Route: 058
     Dates: start: 20190225, end: 20190318

REACTIONS (15)
  - Loss of consciousness [Unknown]
  - Fall [Unknown]
  - Renal impairment [Unknown]
  - Head injury [Unknown]
  - Blood glucose increased [Unknown]
  - Neck pain [Unknown]
  - Nausea [Unknown]
  - Product dose omission [Unknown]
  - Haemoglobin abnormal [Unknown]
  - Hyperhidrosis [Unknown]
  - Limb injury [Unknown]
  - Blood pressure systolic increased [Unknown]
  - Malaise [Unknown]
  - Dizziness [Unknown]
  - Pharyngitis [Unknown]

NARRATIVE: CASE EVENT DATE: 2019
